FAERS Safety Report 4342608-8 (Version None)
Quarter: 2004Q2

REPORT INFORMATION
  Report Type: 
  Country: None (occurrence: None)
  Receive Date: 20040413
  Receipt Date: 20040330
  Transmission Date: 20050107
  Serious: Yes (Hospitalization)
  Sender: FDA-Public Use
  Company Number: 2004206990GB

PATIENT
  Age: 73 Year
  Sex: Female
  Weight: 57 kg

DRUGS (2)
  1. CELEBREX [Suspect]
     Indication: ARTHRITIS
     Dosage: 100 MG, BID, ORAL
     Route: 048
  2. CO-PROXAMOL (DEXTROPROPOXYPHENE HYDROCHLORIDE) [Concomitant]

REACTIONS (1)
  - COLITIS COLLAGENOUS [None]
